FAERS Safety Report 14975115 (Version 1)
Quarter: 2018Q2

REPORT INFORMATION
  Report Type: Spontaneous
  Country: PH (occurrence: PH)
  Receive Date: 20180605
  Receipt Date: 20180605
  Transmission Date: 20180711
  Serious: Yes (Death, Hospitalization, Other)
  Sender: FDA-Public Use
  Company Number: PH-TOLMAR, INC.-2016PH008918

PATIENT
  Age: 83 Year
  Sex: Male

DRUGS (5)
  1. ELIGARD [Suspect]
     Active Substance: LEUPROLIDE ACETATE
     Indication: PROSTATE CANCER
     Dosage: 45 MG, ONCE EVERY 6 MONTHS
     Route: 058
     Dates: start: 20160907
  2. XTANDI [Suspect]
     Active Substance: ENZALUTAMIDE
     Indication: PROSTATE CANCER
     Dosage: 160 MG, DAILY
     Route: 048
     Dates: start: 201706, end: 201805
  3. XGEVA [Concomitant]
     Active Substance: DENOSUMAB
  4. METASTRON [Concomitant]
     Active Substance: STRONTIUM CHLORIDE SR-89
  5. CALCIUM + VITAMIN D3 [Concomitant]
     Active Substance: CALCIUM CARBONATE\CHOLECALCIFEROL

REACTIONS (6)
  - Pneumonia [Fatal]
  - Syringe issue [Unknown]
  - Wrong technique in product usage process [Unknown]
  - Underdose [Unknown]
  - Product preparation error [Unknown]
  - Acute respiratory failure [Fatal]

NARRATIVE: CASE EVENT DATE: 20160907
